FAERS Safety Report 6578305-8 (Version None)
Quarter: 2010Q1

REPORT INFORMATION
  Report Type: 
  Country: None (occurrence: None)
  Receive Date: 20100211
  Receipt Date: 20100203
  Transmission Date: 20100710
  Serious: Yes (Congenital Anomaly)
  Sender: FDA-Public Use
  Company Number: B0632790A

PATIENT
  Sex: Female
  Weight: 6.2 kg

DRUGS (2)
  1. ZIDOVUDINE [Suspect]
     Indication: ANTIVIRAL PROPHYLAXIS
     Dosage: 24MG FOUR TIMES PER DAY
     Route: 048
     Dates: start: 20090614, end: 20090621
  2. NEVIRAPINE [Suspect]
     Indication: ANTIVIRAL PROPHYLAXIS
     Dosage: 6MG PER DAY
     Route: 048
     Dates: start: 20090614, end: 20090616

REACTIONS (2)
  - ATRIAL SEPTAL DEFECT [None]
  - CARDIAC FAILURE CONGESTIVE [None]
